FAERS Safety Report 8220710-8 (Version None)
Quarter: 2012Q1

REPORT INFORMATION
  Report Type: 
  Country: None (occurrence: None)
  Receive Date: 20120320
  Receipt Date: 20120316
  Transmission Date: 20120608
  Serious: Yes (Death, Life-Threatening)
  Sender: FDA-Public Use
  Company Number: KR-JNJFOC-20120304929

PATIENT
  Sex: Male

DRUGS (17)
  1. IRCODON [Concomitant]
     Route: 048
     Dates: start: 20120107, end: 20120207
  2. LASIX [Concomitant]
     Route: 048
     Dates: start: 20120127, end: 20120204
  3. DURAGESIC-100 [Concomitant]
     Route: 062
     Dates: start: 20120123, end: 20120206
  4. PRAGMAN [Concomitant]
     Route: 042
     Dates: start: 20120128, end: 20120207
  5. HYDROMORPHONE HCL [Concomitant]
     Route: 048
     Dates: start: 20120107, end: 20120207
  6. COMBIFLEX PERI [Concomitant]
     Route: 042
     Dates: start: 20120106, end: 20120206
  7. SODIUM CHLORIDE [Concomitant]
     Route: 042
     Dates: start: 20120120, end: 20120206
  8. DUPHALAC [Concomitant]
     Route: 048
     Dates: start: 20120115, end: 20120207
  9. MEGESTROL ACETATE [Concomitant]
     Route: 048
     Dates: start: 20120119, end: 20120207
  10. UNKNOWN MEDICATION [Concomitant]
     Route: 048
     Dates: start: 20120117, end: 20120207
  11. MORPHINE [Concomitant]
     Route: 042
     Dates: start: 20120118, end: 20120203
  12. MUTERAN [Concomitant]
     Route: 042
     Dates: start: 20120131, end: 20120131
  13. DORIPENEM MONOHYDRATE [Suspect]
     Indication: ABDOMINAL INFECTION
     Route: 041
     Dates: start: 20120127
  14. UNKNOWN MEDICATION [Concomitant]
     Route: 042
     Dates: start: 20120120, end: 20120205
  15. ALDACTONE [Concomitant]
     Route: 048
     Dates: start: 20120127, end: 20120204
  16. INTRAVENOUS EPINEPHRINE [Concomitant]
     Route: 042
     Dates: start: 20120206, end: 20120206
  17. DULCOLAX [Concomitant]
     Route: 065
     Dates: start: 20120205, end: 20120206

REACTIONS (6)
  - BLOOD PRESSURE SYSTOLIC DECREASED [None]
  - ASPARTATE AMINOTRANSFERASE INCREASED [None]
  - BILE DUCT CANCER [None]
  - PAIN [None]
  - DYSPNOEA [None]
  - OXYGEN SATURATION DECREASED [None]
